FAERS Safety Report 6792938-5 (Version None)
Quarter: 2010Q2

REPORT INFORMATION
  Report Type: 
  Country: None (occurrence: None)
  Receive Date: 20100624
  Receipt Date: 20081029
  Transmission Date: 20101027
  Serious: Yes (Hospitalization)
  Sender: FDA-Public Use
  Company Number: US-PFIZER INC-2008092096

PATIENT
  Age: 77 Year
  Sex: Male

DRUGS (5)
  1. DIFLUCAN [Suspect]
     Indication: OSTEOMYELITIS
     Dates: start: 20060101
  2. VFEND [Suspect]
     Indication: OSTEOMYELITIS
  3. AMPHOTERICIN B [Suspect]
  4. MICAFUNGIN [Suspect]
  5. IMMUNOSUPPRESSIVE AGENTS [Concomitant]

REACTIONS (4)
  - CARDIOVASCULAR DISORDER [None]
  - CONDITION AGGRAVATED [None]
  - DRUG INEFFECTIVE [None]
  - ILL-DEFINED DISORDER [None]
